FAERS Safety Report 5108854-0 (Version None)
Quarter: 2006Q3

REPORT INFORMATION
  Report Type: 
  Country: None (occurrence: None)
  Receive Date: 20060920
  Receipt Date: 20060911
  Transmission Date: 20061208
  Serious: Yes (Hospitalization, Other)
  Sender: FDA-Public Use
  Company Number: US-BAYER-200613852BCC

PATIENT
  Age: 69 Year
  Sex: Female
  Weight: 57 kg

DRUGS (10)
  1. ALEVE ARTHRTIS TABLETS [Suspect]
     Indication: ARTHRALGIA
     Dosage: TOTAL DAILY DOSE: 220 MG  UNIT DOSE: 220 MG
     Route: 048
     Dates: start: 20060910
  2. ALEVE ARTHRTIS TABLETS [Suspect]
     Dosage: TOTAL DAILY DOSE: 440 MG  UNIT DOSE: 220 MG
     Route: 048
     Dates: start: 20060712, end: 20060721
  3. KEPPRA [Concomitant]
  4. FOSAMAX [Concomitant]
  5. EVISTA [Concomitant]
  6. CELEXA [Concomitant]
  7. MULTI-VITAMIN [Concomitant]
  8. CALTRATE + D [Concomitant]
  9. ASPIRIN [Concomitant]
  10. GAS-X [Concomitant]

REACTIONS (6)
  - ERYTHEMA [None]
  - HEADACHE [None]
  - HEPATOCELLULAR DAMAGE [None]
  - PYREXIA [None]
  - RASH [None]
  - RASH GENERALISED [None]
